FAERS Safety Report 12135380 (Version 2)
Quarter: 2016Q1

REPORT INFORMATION
  Report Type: Spontaneous
  Country: IR (occurrence: IR)
  Receive Date: 20160302
  Receipt Date: 20160308
  Transmission Date: 20160526
  Serious: Yes (Death, Hospitalization, Other)
  Sender: FDA-Public Use
  Company Number: IR-ASTRAZENECA-2016SE19158

PATIENT
  Age: 76 Year
  Sex: Male

DRUGS (2)
  1. PULMICORT RESPULES [Suspect]
     Active Substance: BUDESONIDE
     Indication: ACUTE RESPIRATORY DISTRESS SYNDROME
     Dosage: 0.25 MG/ML
     Route: 055
  2. PULMICORT RESPULES [Suspect]
     Active Substance: BUDESONIDE
     Indication: DYSPNOEA
     Dosage: 0.25 MG/ML
     Route: 055

REACTIONS (6)
  - Anaphylactic reaction [Fatal]
  - Cyanosis [Unknown]
  - Product quality issue [Unknown]
  - Product use issue [Unknown]
  - Condition aggravated [Unknown]
  - Off label use [Unknown]
